FAERS Safety Report 13986201 (Version 1)
Quarter: 2017Q3

REPORT INFORMATION
  Report Type: Spontaneous
  Country: US (occurrence: None)
  Receive Date: 20170919
  Receipt Date: 20170919
  Transmission Date: 20171128
  Serious: Yes (Other)
  Sender: FDA-Public Use
  Company Number: None

PATIENT
  Age: 69 Year
  Sex: Male
  Weight: 70.76 kg

DRUGS (6)
  1. IUPROVEN [Concomitant]
  2. VITAMIN E [Concomitant]
     Active Substance: .ALPHA.-TOCOPHEROL
  3. LEXISCAN [Suspect]
     Active Substance: REGADENOSON
     Indication: CARDIAC STRESS TEST
     Dates: start: 20170309, end: 20170309
  4. VITAMIN C [Concomitant]
     Active Substance: ASCORBIC ACID
  5. BUFFERIN [Concomitant]
     Active Substance: ASPIRIN
  6. MULTIPLE VITAMINS [Concomitant]
     Active Substance: VITAMINS

REACTIONS (3)
  - Muscular weakness [None]
  - Sleep disorder [None]
  - Myalgia [None]

NARRATIVE: CASE EVENT DATE: 20170310
